FAERS Safety Report 8928723 (Version 1)
Quarter: 2012Q4

REPORT INFORMATION
  Report Type: 
  Country: US (occurrence: US)
  Receive Date: 20121128
  Receipt Date: 20121128
  Transmission Date: 20130627
  Serious: Yes (Death, Hospitalization)
  Sender: FDA-Public Use
  Company Number: US-009507513-1211USA010446

PATIENT
  Age: 64 Year
  Sex: Female
  Weight: 82.7 kg

DRUGS (25)
  1. TEMODAR [Suspect]
     Indication: GLIOBLASTOMA
     Dosage: 390 mg, UNK
     Route: 048
     Dates: start: 20101104, end: 20101108
  2. TEMODAR [Suspect]
     Dosage: 380 mg, UNK
     Route: 048
     Dates: start: 20101208, end: 20110103
  3. AVASTIN [Suspect]
     Indication: GLIOBLASTOMA
     Dosage: 827 mg, qow
     Route: 042
     Dates: start: 20101104
  4. AVASTIN [Suspect]
     Dosage: 800 mg, qow
     Route: 042
     Dates: start: 20101208, end: 20110103
  5. IRINOTECAN HYDROCHLORIDE [Suspect]
     Indication: GLIOBLASTOMA
     Dosage: 240 mg, qow
     Route: 042
     Dates: start: 20101104
  6. IRINOTECAN HYDROCHLORIDE [Suspect]
     Dosage: 237 mg, qow
     Route: 042
     Dates: start: 20101208, end: 20110103
  7. IRINOTECAN HYDROCHLORIDE [Suspect]
     Dosage: UNK
  8. LEVAQUIN [Suspect]
     Dosage: UNK
     Route: 048
     Dates: start: 20110110
  9. SIMVASTATIN [Concomitant]
     Dosage: 80 mg, UNK
     Route: 048
  10. VALSARTAN [Concomitant]
     Dosage: 0.5 DF, qd
  11. BISOPROLOL [Concomitant]
     Dosage: 5 mg, UNK
     Route: 048
  12. BISOPROLOL [Concomitant]
     Dosage: 15 mg, UNK
     Route: 048
  13. HYDROCHLOROTHIAZIDE [Concomitant]
     Dosage: 6.25 mg, UNK
  14. XANAX [Concomitant]
     Dosage: TID, prn
  15. LACTOBACILLUS ACIDOPHILUS [Concomitant]
     Dosage: 2 DF, UNK
     Route: 048
  16. CALCIUM (UNSPECIFIED) [Concomitant]
     Dosage: UNK, qd
  17. VITAMINS (UNSPECIFIED) [Concomitant]
  18. COLACE [Concomitant]
     Dosage: 100 mg, bid
  19. OMEPRAZOLE [Concomitant]
     Dosage: 20 mg, UNK
  20. KEPPRA [Concomitant]
     Dosage: 500 mg, bid
  21. TEMAZEPAM [Concomitant]
     Dosage: 15 mg, UNK
     Route: 048
  22. VALTURNA [Concomitant]
     Dosage: 150/160 mg
     Route: 048
  23. CYANOCOBALAMIN [Concomitant]
     Dosage: 1000 U, UNK
     Route: 048
  24. DECADRON TABLETS [Concomitant]
     Dosage: 4 mg, tid
     Route: 048
  25. ALISKIREN [Concomitant]
     Dosage: 0.5 DF, qd

REACTIONS (5)
  - Death [Fatal]
  - Hyponatraemia [Unknown]
  - Infection [Unknown]
  - Diarrhoea [Unknown]
  - Stevens-Johnson syndrome [Unknown]
